FAERS Safety Report 7552674-4 (Version None)
Quarter: 2011Q2

REPORT INFORMATION
  Report Type: 
  Country: None (occurrence: None)
  Receive Date: 20110616
  Receipt Date: 20110401
  Transmission Date: 20111010
  Serious: Yes (Hospitalization)
  Sender: FDA-Public Use
  Company Number: US-MYLANLABS-2011S1003636

PATIENT
  Age: 69 Year
  Sex: Female
  Weight: 64.86 kg

DRUGS (4)
  1. ANASTROZOLE [Suspect]
     Indication: BREAST CANCER
     Route: 048
     Dates: start: 20101230, end: 20101230
  2. VITAMIN TAB [Concomitant]
  3. EYE DROPS [Concomitant]
  4. CALCIUM CARBONATE [Concomitant]

REACTIONS (1)
  - CELLULITIS [None]
